FAERS Safety Report 15037833 (Version 4)
Quarter: 2019Q2

REPORT INFORMATION
  Report Type: Report from Study
  Country: US (occurrence: US)
  Receive Date: 20180620
  Receipt Date: 20190405
  Transmission Date: 20190711
  Serious: Yes (Hospitalization)
  Sender: FDA-Public Use
  Company Number: US-ACTELION-A-US2018-173752

PATIENT
  Sex: Female
  Weight: 107.48 kg

DRUGS (2)
  1. OPSUMIT [Suspect]
     Active Substance: MACITENTAN
     Indication: PULMONARY ARTERIAL HYPERTENSION
     Dosage: 10 MG, QD
     Route: 048
     Dates: start: 20170825, end: 201808
  2. OPSUMIT [Suspect]
     Active Substance: MACITENTAN
     Dosage: 10 MG, QD
     Route: 048

REACTIONS (8)
  - Hernia [Unknown]
  - Postoperative wound infection [Unknown]
  - Headache [Unknown]
  - Gastrointestinal disorder [Unknown]
  - Small intestinal obstruction [Unknown]
  - Product dose omission [Unknown]
  - Hypoaesthesia [Unknown]
  - Abdominal operation [Unknown]
